FAERS Safety Report 7117116 (Version 3)
Quarter: 2012Q4

REPORT INFORMATION
  Report Type: Report from Study
  Country: US (occurrence: US)
  Receive Date: 20090917
  Receipt Date: 20121130
  Transmission Date: 20130627
  Serious: Yes (Death, Hospitalization, Other)
  Sender: FDA-Public Use
  Company Number: US-ROCHE-652557

PATIENT
  Age: 41 Year
  Sex: Female
  Weight: 62.6 kg

DRUGS (1)
  1. CAPECITABINE [Suspect]
     Indication: BREAST CANCER
     Dosage: TWO TABLETS IN MORNING AND ONE IN EVENING
     Route: 048
     Dates: start: 20090512, end: 20090912

REACTIONS (5)
  - Death [Fatal]
  - Pain [Unknown]
  - Hypoaesthesia [Unknown]
  - Spinal cord compression [Not Recovered/Not Resolved]
  - Neoplasm malignant [Unknown]
